FAERS Safety Report 23412989 (Version 1)
Quarter: 2024Q1

REPORT INFORMATION
  Report Type: Spontaneous
  Country: US (occurrence: US)
  Receive Date: 20240117
  Receipt Date: 20240117
  Transmission Date: 20240409
  Serious: No
  Sender: FDA-Public Use
  Company Number: US-NOVOPROD-1124873

PATIENT
  Age: 71 Year
  Sex: Female

DRUGS (2)
  1. OZEMPIC [Suspect]
     Active Substance: SEMAGLUTIDE
     Dosage: UNK(RESTARTED)
     Route: 058
     Dates: end: 202309
  2. OZEMPIC [Suspect]
     Active Substance: SEMAGLUTIDE
     Indication: Type 2 diabetes mellitus
     Dosage: 0.25MG
     Route: 058
     Dates: start: 20230426, end: 20230722

REACTIONS (4)
  - Oesophageal disorder [Recovered/Resolved]
  - Diarrhoea [Recovered/Resolved]
  - Vomiting [Recovered/Resolved]
  - Off label use of device [Unknown]

NARRATIVE: CASE EVENT DATE: 20230426
